FAERS Safety Report 17389941 (Version 2)
Quarter: 2020Q2

REPORT INFORMATION
  Report Type: Spontaneous
  Country: US (occurrence: US)
  Receive Date: 20200207
  Receipt Date: 20200403
  Transmission Date: 20200713
  Serious: No
  Sender: FDA-Public Use
  Company Number: US-BIOMARINAP-US-2020-127986

PATIENT
  Age: 58 Year
  Sex: Male

DRUGS (2)
  1. KUVAN [Suspect]
     Active Substance: SAPROPTERIN DIHYDROCHLORIDE
     Dosage: 100 MILLIGRAM, QD
     Route: 048
  2. KUVAN [Suspect]
     Active Substance: SAPROPTERIN DIHYDROCHLORIDE
     Indication: PHENYLKETONURIA
     Dosage: 1800 MILLIGRAM, QD
     Route: 048
     Dates: start: 201709

REACTIONS (2)
  - Product dose omission [Unknown]
  - Pneumonia [Not Recovered/Not Resolved]

NARRATIVE: CASE EVENT DATE: 2020
